FAERS Safety Report 23700780 (Version 1)
Quarter: 2024Q2

REPORT INFORMATION
  Report Type: Report from Study
  Country: US (occurrence: US)
  Receive Date: 20240403
  Receipt Date: 20240403
  Transmission Date: 20240716
  Serious: Yes (Other)
  Sender: FDA-Public Use
  Company Number: US-ABBVIE-5701515

PATIENT
  Age: 40 Year
  Sex: Female

DRUGS (1)
  1. HUMIRA [Suspect]
     Active Substance: ADALIMUMAB
     Indication: Hidradenitis
     Route: 058
     Dates: start: 20231014

REACTIONS (3)
  - Carpal tunnel syndrome [Recovering/Resolving]
  - Hidradenitis [Not Recovered/Not Resolved]
  - Acrochordon [Recovering/Resolving]

NARRATIVE: CASE EVENT DATE: 20231014
